FAERS Safety Report 14302001 (Version 1)
Quarter: 2017Q4

REPORT INFORMATION
  Report Type: Spontaneous
  Country: JP (occurrence: JP)
  Receive Date: 20171219
  Receipt Date: 20171219
  Transmission Date: 20180321
  Serious: Yes (Hospitalization)
  Sender: FDA-Public Use
  Company Number: JP-EMCURE PHARMS-2017HTG00365

PATIENT
  Age: 66 Year
  Sex: Male

DRUGS (2)
  1. CARMUSTINE [Suspect]
     Active Substance: CARMUSTINE
     Indication: GLIOBLASTOMA
     Dosage: 8 WAFERS (FIRST SURGERY)
  2. CARMUSTINE [Suspect]
     Active Substance: CARMUSTINE
     Dosage: 8 WAFERS (SECOND SURGERY)

REACTIONS (1)
  - Cerebral cyst [Not Recovered/Not Resolved]
